FAERS Safety Report 9774776 (Version 1)
Quarter: 2013Q4

REPORT INFORMATION
  Report Type: Spontaneous
  Country: US (occurrence: US)
  Receive Date: 20131220
  Receipt Date: 20131220
  Transmission Date: 20140711
  Serious: No
  Sender: FDA-Public Use
  Company Number: US-009507513-1312USA009618

PATIENT
  Sex: 0

DRUGS (2)
  1. FOSAMAX [Suspect]
     Route: 048
  2. FOSAMAX PLUS D [Suspect]
     Route: 048

REACTIONS (1)
  - Fracture [Unknown]
